FAERS Safety Report 6217569-7 (Version None)
Quarter: 2009Q2

REPORT INFORMATION
  Report Type: 
  Country: None (occurrence: None)
  Receive Date: 20090608
  Receipt Date: 20090311
  Transmission Date: 20091009
  Serious: No
  Sender: FDA-Public Use
  Company Number: A0770701A

PATIENT
  Age: 47 Year
  Sex: Female
  Weight: 65.9 kg

DRUGS (2)
  1. WELLBUTRIN XL [Suspect]
     Indication: DEPRESSION
     Dosage: 150MG PER DAY
     Route: 048
     Dates: start: 20090225
  2. HORMONE REPLACEMENT [Concomitant]
     Route: 048

REACTIONS (1)
  - HEADACHE [None]
